FAERS Safety Report 9857036 (Version 1)
Quarter: 2014Q1

REPORT INFORMATION
  Report Type: Report from Study
  Country: IT (occurrence: IT)
  Receive Date: 20140130
  Receipt Date: 20140130
  Transmission Date: 20141002
  Serious: Yes (Hospitalization)
  Sender: FDA-Public Use
  Company Number: IT-TEVA-458246ISR

PATIENT
  Age: 78 Year
  Sex: Female

DRUGS (9)
  1. MYOCET [Suspect]
     Indication: HODGKIN^S DISEASE
     Route: 042
     Dates: start: 20110530, end: 20120102
  2. VINBLASTINA TEVA [Suspect]
     Indication: HODGKIN^S DISEASE
     Route: 042
     Dates: start: 20110530, end: 20120102
  3. BLEOMICINA [Suspect]
     Indication: HODGKIN^S DISEASE
     Route: 042
     Dates: start: 20110530, end: 20120102
  4. DACARBAZINA [Suspect]
     Indication: HODGKIN^S DISEASE
     Dosage: 611 MILLIGRAM DAILY;
     Route: 042
     Dates: start: 20110530, end: 20120102
  5. PREDNISONE [Suspect]
     Indication: HODGKIN^S DISEASE
     Dosage: 40 MILLIGRAM DAILY;
     Route: 048
     Dates: start: 20110530, end: 20120102
  6. MEPRAL [Concomitant]
     Dates: start: 20111103, end: 20111120
  7. MEPRAL [Concomitant]
     Dates: start: 20111103, end: 20111120
  8. GLIBOMET [Concomitant]
     Dates: start: 20111103, end: 20111107
  9. ZEFFIX [Concomitant]
     Dates: start: 20111103, end: 20111107

REACTIONS (5)
  - Stomatitis [Recovered/Resolved]
  - Leukopenia [Recovered/Resolved]
  - Neutropenia [Recovered/Resolved]
  - Anaemia [Recovered/Resolved]
  - Pyrexia [Recovered/Resolved]
